FAERS Safety Report 21938070 (Version 2)
Quarter: 2023Q1

REPORT INFORMATION
  Report Type: Spontaneous
  Country: ES (occurrence: ES)
  Receive Date: 20230201
  Receipt Date: 20230206
  Transmission Date: 20230417
  Serious: Yes (Other)
  Sender: FDA-Public Use
  Company Number: ES-LEO Pharma-348755

PATIENT
  Age: 42 Year
  Sex: Male

DRUGS (2)
  1. DEVICE [Suspect]
     Active Substance: DEVICE
     Indication: Dermatitis atopic
  2. ADBRY [Suspect]
     Active Substance: TRALOKINUMAB-LDRM
     Indication: Dermatitis atopic
     Dates: start: 202204

REACTIONS (6)
  - Alopecia [Unknown]
  - Alopecia [Unknown]
  - Cutaneous T-cell lymphoma [Unknown]
  - Condition aggravated [Unknown]
  - Condition aggravated [Unknown]
  - Cutaneous T-cell lymphoma [Unknown]

NARRATIVE: CASE EVENT DATE: 20220601
